FAERS Safety Report 4700916-2 (Version None)
Quarter: 2005Q2

REPORT INFORMATION
  Report Type: 
  Country: None (occurrence: None)
  Receive Date: 20050624
  Receipt Date: 20050609
  Transmission Date: 20051028
  Serious: Yes (Other)
  Sender: FDA-Public Use
  Company Number: US015438

PATIENT
  Age: 37 Year
  Sex: Female
  Weight: 54.8852 kg

DRUGS (5)
  1. ACTIQ [Suspect]
     Indication: PAIN
     Dosage: 800 UG BID BUCCAL
     Route: 002
     Dates: start: 20040601, end: 20041001
  2. ACTIQ [Suspect]
     Indication: PAIN
     Dosage: 800 UG BID BUCCAL
     Route: 002
  3. TRILEPTAL [Concomitant]
  4. ZOLOFT [Concomitant]
  5. MORPHINE [Concomitant]

REACTIONS (5)
  - DRUG EXPOSURE DURING PREGNANCY [None]
  - PRE-ECLAMPSIA [None]
  - PREGNANCY [None]
  - PREMATURE LABOUR [None]
  - STILLBIRTH [None]
